FAERS Safety Report 11294981 (Version 1)
Quarter: 2015Q3

REPORT INFORMATION
  Report Type: Spontaneous
  Country: US (occurrence: US)
  Receive Date: 20150723
  Receipt Date: 20150723
  Transmission Date: 20151125
  Serious: Yes (Hospitalization, Other)
  Sender: FDA-Public Use
  Company Number: US-SUN PHARMACEUTICAL INDUSTRIES LTD-2015SUN01634

PATIENT

DRUGS (8)
  1. LEUCOVORIN. [Suspect]
     Active Substance: LEUCOVORIN
     Indication: PANCREATIC CARCINOMA METASTATIC
     Dosage: UNK
     Route: 065
  2. FLUOROURACIL. [Suspect]
     Active Substance: FLUOROURACIL
     Indication: PANCREATIC CARCINOMA METASTATIC
     Dosage: UNK
     Route: 065
  3. OXALIPLATIN. [Suspect]
     Active Substance: OXALIPLATIN
     Indication: PANCREATIC CARCINOMA METASTATIC
     Dosage: UNK
     Route: 065
  4. LEUCOVORIN. [Suspect]
     Active Substance: LEUCOVORIN
     Dosage: 25% DOSE REDUCTIOIN AFTER 2 CYCLE
     Route: 065
  5. IRINOTECAN [Suspect]
     Active Substance: IRINOTECAN
     Indication: PANCREATIC CARCINOMA METASTATIC
     Dosage: UNK
     Route: 065
  6. IRINOTECAN [Suspect]
     Active Substance: IRINOTECAN
     Dosage: 25% DOSE REDUCTIOIN AFTER 2 CYCLE
     Route: 065
  7. OXALIPLATIN. [Suspect]
     Active Substance: OXALIPLATIN
     Dosage: 25% DOSE REDUCTIOIN AFTER 2 CYCLE
     Route: 065
  8. FLUOROURACIL. [Suspect]
     Active Substance: FLUOROURACIL
     Dosage: 25% DOSE REDUCTIOIN AFTER 2 CYCLE
     Route: 065

REACTIONS (7)
  - Liver abscess [Unknown]
  - Gastrointestinal toxicity [Unknown]
  - Streptococcal abscess [Not Recovered/Not Resolved]
  - Splenic abscess [Unknown]
  - Seizure [Unknown]
  - Neutropenia [Recovered/Resolved]
  - Central nervous system abscess [Not Recovered/Not Resolved]
